FAERS Safety Report 14540917 (Version 1)
Quarter: 2018Q1

REPORT INFORMATION
  Report Type: Spontaneous
  Country: GB (occurrence: GB)
  Receive Date: 20180216
  Receipt Date: 20180216
  Transmission Date: 20180509
  Serious: Yes (Hospitalization, Other)
  Sender: FDA-Public Use
  Company Number: GB-OTSUKA-DJ20060408

PATIENT
  Age: 92 Year
  Sex: Male

DRUGS (4)
  1. DONEPEZIL. [Suspect]
     Active Substance: DONEPEZIL
     Indication: SCHIZOPHRENIA
     Dosage: 10 MG, UNK
     Route: 048
     Dates: start: 200506
  2. ABILIFY [Suspect]
     Active Substance: ARIPIPRAZOLE
     Indication: SCHIZOPHRENIA
     Dosage: 5 MG, UNK
     Route: 048
     Dates: start: 200506
  3. LEVOTHYROXINE. [Concomitant]
     Active Substance: LEVOTHYROXINE
     Indication: HYPOTHYROIDISM
     Dosage: UNK
     Route: 065
     Dates: start: 2001
  4. ASPIRIN. [Concomitant]
     Active Substance: ASPIRIN
     Indication: MYOCARDIAL ISCHAEMIA
     Dosage: 75 MG, UNK
     Route: 048
     Dates: start: 2000

REACTIONS (2)
  - Dermatitis exfoliative [Not Recovered/Not Resolved]
  - Hypothermia [Not Recovered/Not Resolved]

NARRATIVE: CASE EVENT DATE: 200507
